FAERS Safety Report 26079791 (Version 4)
Quarter: 2025Q4

REPORT INFORMATION
  Report Type: Report from Study
  Country: EU (occurrence: EU)
  Receive Date: 20251123
  Receipt Date: 20251230
  Transmission Date: 20260118
  Serious: Yes (Hospitalization)
  Sender: ABBVIE
  Company Number: EU-ABBVIE-6501779

PATIENT
  Age: 75 Year
  Sex: Female

DRUGS (4)
  1. FOSCARBIDOPA\FOSLEVODOPA [Suspect]
     Active Substance: FOSCARBIDOPA\FOSLEVODOPA
     Indication: Parkinson^s disease
     Dosage: CRN: 0.32 ML/H, CR: 0.36 ML/H, CRH: 0.40 ML/H, ED: 0.25 ML
     Route: 058
     Dates: start: 20240205
  2. FOSCARBIDOPA\FOSLEVODOPA [Suspect]
     Active Substance: FOSCARBIDOPA\FOSLEVODOPA
     Dosage: DOSE REDUCED; CRN:0.28ML/H, CR:0.37ML/H, CRH:0.39ML/H, ED:0.25ML.
     Route: 058
  3. FOSCARBIDOPA\FOSLEVODOPA [Suspect]
     Active Substance: FOSCARBIDOPA\FOSLEVODOPA
     Dosage: CR:0.36ML/H, CRH:0.40ML/H, CRN:0.25ML/H, ED:0.25ML
     Route: 058
  4. FOSCARBIDOPA\FOSLEVODOPA [Suspect]
     Active Substance: FOSCARBIDOPA\FOSLEVODOPA
     Dosage: CRN:0.25ML/H; CR:0.36ML/H; CRH:0.40ML/H; ED:0.25ML
     Route: 058
     Dates: end: 20251219

REACTIONS (9)
  - Gallbladder disorder [Unknown]
  - Hypokinesia [Recovering/Resolving]
  - Decreased appetite [Not Recovered/Not Resolved]
  - General physical health deterioration [Not Recovered/Not Resolved]
  - On and off phenomenon [Unknown]
  - Dementia [Not Recovered/Not Resolved]
  - Movement disorder [Unknown]
  - Weight decreased [Not Recovered/Not Resolved]
  - Device use issue [Unknown]

NARRATIVE: CASE EVENT DATE: 20250101
